FAERS Safety Report 9055781 (Version 2)
Quarter: 2014Q1

REPORT INFORMATION
  Report Type: Spontaneous
  Country: US (occurrence: US)
  Receive Date: 20130206
  Receipt Date: 20140109
  Transmission Date: 20141002
  Serious: No
  Sender: FDA-Public Use
  Company Number: US-TEVA-384627USA

PATIENT
  Age: 66 Year
  Sex: Female

DRUGS (6)
  1. COPAXONE [Suspect]
     Indication: MULTIPLE SCLEROSIS
     Dates: start: 201202
  2. VERAPAMIL [Concomitant]
  3. DIOVAN [Concomitant]
  4. CARVEDILOL [Concomitant]
  5. OMEPRAZOLE [Concomitant]
  6. ALBUTEROL [Concomitant]

REACTIONS (1)
  - Alopecia [Not Recovered/Not Resolved]
